FAERS Safety Report 8536908-5 (Version None)
Quarter: 2012Q3

REPORT INFORMATION
  Report Type: 
  Country: None (occurrence: None)
  Receive Date: 20120713
  Receipt Date: 20120702
  Transmission Date: 20120928
  Serious: Yes (Death, Hospitalization)
  Sender: FDA-Public Use
  Company Number: 136117

PATIENT
  Age: 72 Year
  Sex: Male
  Weight: 65 kg

DRUGS (1)
  1. LEUCOVORIN CALCIUM [Suspect]
     Indication: GASTRIC CANCER
     Dosage: 400MG/M2 IV
     Route: 042
     Dates: start: 20120127, end: 20120502

REACTIONS (8)
  - NAUSEA [None]
  - DEHYDRATION [None]
  - BLOOD CREATININE INCREASED [None]
  - ASTHENIA [None]
  - GASTRIC CANCER [None]
  - NEOPLASM PROGRESSION [None]
  - HYPOTENSION [None]
  - BLOOD UREA INCREASED [None]
